FAERS Safety Report 17448264 (Version 1)
Quarter: 2020Q1

REPORT INFORMATION
  Report Type: Spontaneous
  Country: GR (occurrence: GR)
  Receive Date: 20200223
  Receipt Date: 20200223
  Transmission Date: 20200409
  Serious: Yes (Other)
  Sender: FDA-Public Use
  Company Number: NVSC2020GR047619

PATIENT
  Age: 38 Year
  Sex: Female

DRUGS (1)
  1. DEFEROXAMINE [Suspect]
     Active Substance: DEFEROXAMINE MESYLATE
     Indication: THALASSAEMIA BETA
     Dosage: 45 MG/KG, QD(35-45 MG/KG/D (5-7X/WK)
     Route: 065
     Dates: start: 1985, end: 2001

REACTIONS (2)
  - Serum ferritin abnormal [Unknown]
  - Haemosiderosis [Unknown]
